FAERS Safety Report 20822129 (Version 2)
Quarter: 2022Q2

REPORT INFORMATION
  Report Type: Spontaneous
  Country: US (occurrence: US)
  Receive Date: 20220512
  Receipt Date: 20220527
  Transmission Date: 20220720
  Serious: No
  Sender: FDA-Public Use
  Company Number: US-PFIZER INC-202200574406

PATIENT
  Age: 66 Year
  Sex: Female

DRUGS (1)
  1. XELJANZ [Suspect]
     Active Substance: TOFACITINIB CITRATE
     Dosage: 5 MG, (60 TABLETS FOR 30 DAYS)

REACTIONS (3)
  - Vision blurred [Unknown]
  - Malaise [Unknown]
  - Malaise [Unknown]
